FAERS Safety Report 18634396 (Version 6)
Quarter: 2022Q2

REPORT INFORMATION
  Report Type: Spontaneous
  Country: US (occurrence: US)
  Receive Date: 20201218
  Receipt Date: 20220401
  Transmission Date: 20220721
  Serious: No
  Sender: FDA-Public Use
  Company Number: US-PFIZER INC-2020494048

PATIENT
  Age: 11 Year
  Sex: Female
  Weight: 31.75 kg

DRUGS (1)
  1. GENOTROPIN [Suspect]
     Active Substance: SOMATROPIN
     Indication: Growth disorder
     Dosage: 2.2 MG, 1X/DAY
     Dates: start: 2019

REACTIONS (3)
  - Drug dose omission by device [Unknown]
  - Device malfunction [Unknown]
  - Device breakage [Unknown]

NARRATIVE: CASE EVENT DATE: 20201213
